FAERS Safety Report 23780098 (Version 1)
Quarter: 2024Q2

REPORT INFORMATION
  Report Type: Spontaneous
  Country: US (occurrence: US)
  Receive Date: 20240424
  Receipt Date: 20240424
  Transmission Date: 20240715
  Serious: Yes (Hospitalization)
  Sender: FDA-Public Use
  Company Number: US-PARTNER THERAPEUTICS-2024PTX00014

PATIENT
  Age: 3 Year
  Sex: Male
  Weight: 18.685 kg

DRUGS (9)
  1. LEUKINE [Suspect]
     Active Substance: SARGRAMOSTIM
     Indication: Full blood count abnormal
     Dosage: 190 ?G (0.76 ML) UNDER THE SKIN, 1X/DAY FOR 14 DAYS
     Route: 058
     Dates: start: 202311
  2. TYLENOL [Concomitant]
     Active Substance: ACETAMINOPHEN
  3. SENNA S [Concomitant]
     Active Substance: DOCUSATE SODIUM\SENNA LEAF
  4. MIRALAX [Concomitant]
     Active Substance: POLYETHYLENE GLYCOL 3350
  5. LACTULOSE [Concomitant]
     Active Substance: LACTULOSE
  6. BENADRYL [Concomitant]
     Active Substance: DIPHENHYDRAMINE HYDROCHLORIDE
  7. ONDANSETRON HYDROCHLORIDE [Concomitant]
     Active Substance: ONDANSETRON HYDROCHLORIDE
  8. ATIVAN [Concomitant]
     Active Substance: LORAZEPAM
  9. UNSPECIFIED INGREDIENT [Concomitant]
     Active Substance: UNSPECIFIED INGREDIENT

REACTIONS (9)
  - Swelling face [Recovered/Resolved]
  - Cough [Recovered/Resolved]
  - Confusional state [Recovered/Resolved]
  - Disorientation [Recovered/Resolved]
  - Aphasia [Recovered/Resolved]
  - Anaphylactic shock [Recovered/Resolved]
  - Erythema [Recovered/Resolved]
  - Vomiting [Recovered/Resolved]
  - Off label use [Recovered/Resolved]

NARRATIVE: CASE EVENT DATE: 20231101
